FAERS Safety Report 6007948-5 (Version None)
Quarter: 2008Q4

REPORT INFORMATION
  Report Type: 
  Country: None (occurrence: None)
  Receive Date: 20081217
  Receipt Date: 20080617
  Transmission Date: 20090506
  Serious: No
  Sender: FDA-Public Use
  Company Number: US-ASTRAZENECA-2008UW12194

PATIENT
  Age: 76 Year
  Sex: Female
  Weight: 98 kg

DRUGS (3)
  1. CRESTOR [Suspect]
     Indication: BLOOD CHOLESTEROL INCREASED
     Route: 048
     Dates: start: 20080501
  2. CRESTOR [Suspect]
     Route: 048
     Dates: start: 20080401, end: 20080501
  3. AVALIDE [Concomitant]

REACTIONS (2)
  - RASH PRURITIC [None]
  - TREMOR [None]
